FAERS Safety Report 5015700-2 (Version None)
Quarter: 2006Q2

REPORT INFORMATION
  Report Type: 
  Country: None (occurrence: None)
  Receive Date: 20060526
  Receipt Date: 20060515
  Transmission Date: 20061013
  Serious: Yes (Hospitalization)
  Sender: FDA-Public Use
  Company Number: GXKR2006TW02681

PATIENT
  Age: 73 Year
  Sex: Male

DRUGS (4)
  1. RIFAMPICIN [Suspect]
     Indication: PULMONARY TUBERCULOSIS
     Dosage: 600 MG, ORAL
     Route: 048
  2. ISONIAZID [Concomitant]
  3. ETHAMBUTOL (ETHAMBUTOL) [Concomitant]
  4. PYRAZINAMIDE [Concomitant]

REACTIONS (13)
  - ANOREXIA [None]
  - CONJUNCTIVAL DISCOLOURATION [None]
  - DECREASED APPETITE [None]
  - FATIGUE [None]
  - GLOMERULONEPHRITIS RAPIDLY PROGRESSIVE [None]
  - HAEMODIALYSIS [None]
  - HAEMOLYSIS [None]
  - HYPERSENSITIVITY [None]
  - MALAISE [None]
  - OEDEMA PERIPHERAL [None]
  - RENAL FAILURE ACUTE [None]
  - THROMBOCYTOPENIA [None]
  - TUBULOINTERSTITIAL NEPHRITIS [None]
